FAERS Safety Report 9840746 (Version 1)
Quarter: 2013Q4

REPORT INFORMATION
  Report Type: Spontaneous
  Country: JP (occurrence: None)
  Receive Date: 20131211
  Receipt Date: 20131211
  Transmission Date: 20140711
  Serious: Yes (Hospitalization)
  Sender: FDA-Public Use
  Company Number: ALL1-2012-04015

PATIENT
  Age: 66 Year
  Sex: Female

DRUGS (15)
  1. FOSRENOL [Suspect]
     Indication: HYPERPHOSPHATAEMIA
     Dosage: IMMEDIATELY AFTER MEALS
     Route: 048
     Dates: start: 20090713, end: 20101030
  2. PRECIPITATED CALCIUM CARBONATE (CALCIUM CARBONATE) [Concomitant]
  3. PRECIPITATED CALCIUIM CARBONATE (CALCIUM CARBONATE) [Concomitant]
  4. LASIX /00032601/(FUROSEMIDE) [Concomitant]
  5. ARGAMATE (CALCIUM POLYSTYRENE SULFONATE) [Concomitant]
  6. NESP (DARBEPOETIN ALFA) [Concomitant]
  7. HIRUDOID/00723701)(HEPARINOID) [Concomitant]
  8. NERISONA (DIFLUCORTOLONE VALERATE) [Concomitant]
  9. ROCALTROL (CALCITRIOL) [Concomitant]
  10. ROCALTROL (CALCITROL) [Concomitant]
  11. ROCALTROL (CALCITROL) [Concomitant]
  12. ROCALTROL (CALCITROL) [Concomitant]
  13. REGPARA (CINCALCET HYDROCHLORIDE) [Concomitant]
  14. NEXIUM /01479302/(ESOMEPRAZOLE MAGNESIUM) [Concomitant]
  15. MERISLON (BETAHISTINE MESILATE) [Concomitant]

REACTIONS (2)
  - Vomiting [None]
  - Nausea [None]
